FAERS Safety Report 4779422-5 (Version None)
Quarter: 2005Q3

REPORT INFORMATION
  Report Type: 
  Country: None (occurrence: None)
  Receive Date: 20050914
  Receipt Date: 20050111
  Transmission Date: 20060218
  Serious: Yes (Hospitalization)
  Sender: FDA-Public Use
  Company Number: 163-20785-05010231

PATIENT
  Age: 77 Year
  Sex: Female
  Weight: 57.1532 kg

DRUGS (4)
  1. THALOMID [Suspect]
     Indication: SMALL CELL LUNG CANCER STAGE UNSPECIFIED
     Dosage: 200 MG, QHS, ORAL
     Route: 048
     Dates: start: 20040910, end: 20050107
  2. THALOMID [Suspect]
     Indication: SMALL CELL LUNG CANCER STAGE UNSPECIFIED
     Dosage: 200 MG, QHS, ORAL
     Route: 048
     Dates: start: 20050109
  3. DULCOLAX [Concomitant]
  4. IBUPROFEN [Concomitant]

REACTIONS (2)
  - HYPERTENSION [None]
  - LABYRINTHITIS [None]
